FAERS Safety Report 4401263-9 (Version None)
Quarter: 2004Q3

REPORT INFORMATION
  Report Type: 
  Country: None (occurrence: None)
  Receive Date: 20040907
  Receipt Date: 20040126
  Transmission Date: 20050211
  Serious: No
  Sender: FDA-Public Use
  Company Number: US-BRISTOL-MYERS SQUIBB COMPANY-12487724

PATIENT
  Age: 90 Year
  Sex: Female
  Weight: 70 kg

DRUGS (7)
  1. COUMADIN [Suspect]
     Indication: PROPHYLAXIS
     Dosage: 2MG FOR 1 YEAR, 4MG FOR 1 MONTH, THEN 3MG
     Route: 048
     Dates: start: 20030101
  2. CARDIZEM [Concomitant]
  3. ZOCOR [Concomitant]
  4. NITROGLYCERIN [Concomitant]
  5. SYNTHROID [Concomitant]
  6. HYDROCHLOROTHIAZIDE [Concomitant]
  7. LISINOPRIL [Concomitant]

REACTIONS (1)
  - HEADACHE [None]
